FAERS Safety Report 7914865-X (Version None)
Quarter: 2011Q4

REPORT INFORMATION
  Report Type: 
  Country: None (occurrence: None)
  Receive Date: 20111115
  Receipt Date: 20111108
  Transmission Date: 20120403
  Serious: Yes (Death)
  Sender: FDA-Public Use
  Company Number: JP-UCBSA-045352

PATIENT
  Age: 72 Year
  Sex: Male
  Weight: 50 kg

DRUGS (2)
  1. KEPPRA [Suspect]
     Indication: PARTIAL SEIZURES WITH SECONDARY GENERALISATION
     Route: 048
     Dates: start: 20110624, end: 20110929
  2. PHENYTOIN SODIUM CAP [Concomitant]
     Indication: GRAND MAL CONVULSION
     Dosage: VIA TUBE

REACTIONS (1)
  - ACUTE RESPIRATORY DISTRESS SYNDROME [None]
